FAERS Safety Report 20323604 (Version 1)
Quarter: 2022Q1

REPORT INFORMATION
  Report Type: Spontaneous
  Country: US (occurrence: None)
  Receive Date: 20220111
  Receipt Date: 20220111
  Transmission Date: 20220423
  Serious: Yes (Hospitalization)
  Sender: FDA-Public Use
  Company Number: None

PATIENT
  Age: 70 Year
  Sex: Female

DRUGS (1)
  1. TADALAFIL [Suspect]
     Active Substance: TADALAFIL
     Indication: Pulmonary arterial hypertension
     Dosage: TAKE 2 TABLETS BY MOUTH EVERY DAY
     Route: 048
     Dates: start: 20210215

REACTIONS (4)
  - Post procedural haemorrhage [None]
  - Large intestine polyp [None]
  - Full blood count abnormal [None]
  - Therapy interrupted [None]

NARRATIVE: CASE EVENT DATE: 20211201
